FAERS Safety Report 16616336 (Version 16)
Quarter: 2022Q2

REPORT INFORMATION
  Report Type: Report from Study
  Country: GB (occurrence: GB)
  Receive Date: 20190723
  Receipt Date: 20220429
  Transmission Date: 20220721
  Serious: Yes (Other)
  Sender: FDA-Public Use
  Company Number: GB-EMA-DD-20190213-KUMARVN_P-144443

PATIENT
  Age: 54 Year
  Sex: Female

DRUGS (228)
  1. EXEMESTANE [Suspect]
     Active Substance: EXEMESTANE
     Indication: HER2 positive breast cancer
     Dosage: 25 MILLIGRAM, QD, START DATE: 28-APR-2017
     Route: 048
     Dates: start: 20170428, end: 20180110
  2. LETROZOLE [Suspect]
     Active Substance: LETROZOLE
     Indication: HER2 positive breast cancer
     Dosage: 2.5 MILLIGRAM, QD
     Route: 048
     Dates: start: 201507, end: 20170427
  3. LETROZOLE [Suspect]
     Active Substance: LETROZOLE
     Dosage: 2.5 MILLIGRAM, QD
     Route: 048
     Dates: start: 20170427
  4. HYALURONIDASE (HUMAN RECOMBINANT)\TRASTUZUMAB [Suspect]
     Active Substance: HYALURONIDASE (HUMAN RECOMBINANT)\TRASTUZUMAB
     Indication: HER2 positive breast cancer
     Dosage: 600 MILLIGRAM, MONTHLY
     Route: 058
     Dates: start: 20150716, end: 20171222
  5. HYALURONIDASE (HUMAN RECOMBINANT)\TRASTUZUMAB [Suspect]
     Active Substance: HYALURONIDASE (HUMAN RECOMBINANT)\TRASTUZUMAB
     Dosage: 600 MILLIGRAM, MONTHLY
     Route: 042
     Dates: start: 20150716, end: 20171222
  6. HYALURONIDASE (HUMAN RECOMBINANT)\TRASTUZUMAB [Suspect]
     Active Substance: HYALURONIDASE (HUMAN RECOMBINANT)\TRASTUZUMAB
     Dosage: UNK
  7. HYALURONIDASE (HUMAN RECOMBINANT)\TRASTUZUMAB [Suspect]
     Active Substance: HYALURONIDASE (HUMAN RECOMBINANT)\TRASTUZUMAB
     Dosage: 420 MILLIGRAM, 4XW
     Route: 042
     Dates: start: 20180118
  8. ADO-TRASTUZUMAB EMTANSINE [Suspect]
     Active Substance: ADO-TRASTUZUMAB EMTANSINE
     Indication: HER2 positive breast cancer
     Dosage: 420 MILLIGRAM, Q28D, 420 MG, Q4W
     Route: 042
     Dates: start: 20180118
  9. DEXAMETHASONE [Concomitant]
     Active Substance: DEXAMETHASONE
     Indication: Metastases to bone
     Dosage: REDUCING DOSE FROM HOSPITAL ADMISSION 8/OCT/2015- 10/OCT/2015
     Route: 048
     Dates: start: 20151008, end: 20151020
  10. DEXAMETHASONE [Concomitant]
     Active Substance: DEXAMETHASONE
     Dosage: 2 MILLIGRAM, BID (REDUCING WEEKLY DOSE)
     Route: 048
     Dates: start: 20151111, end: 20151117
  11. DEXAMETHASONE [Concomitant]
     Active Substance: DEXAMETHASONE
     Dosage: 1 MILLIGRAM, BID
     Route: 048
     Dates: start: 20151125, end: 20151202
  12. DEXAMETHASONE [Concomitant]
     Active Substance: DEXAMETHASONE
     Dosage: 4 MILLIGRAM, QD
     Route: 048
     Dates: start: 20151104, end: 20151110
  13. DEXAMETHASONE [Concomitant]
     Active Substance: DEXAMETHASONE
     Dosage: 1 MILLIGRAM, QD
     Route: 048
     Dates: start: 20151118, end: 20151124
  14. DEXAMETHASONE [Concomitant]
     Active Substance: DEXAMETHASONE
     Dosage: 4 MILLIGRAM, QD
     Route: 048
     Dates: start: 20151020, end: 20151103
  15. DEXAMETHASONE [Concomitant]
     Active Substance: DEXAMETHASONE
     Dosage: 8 MILLIGRAM, QD
     Route: 048
     Dates: start: 20151020, end: 20151103
  16. DEXAMETHASONE [Concomitant]
     Active Substance: DEXAMETHASONE
     Dosage: 4 MILLIGRAM, QD, REDUCING WEEKLY DOSE
     Route: 048
     Dates: start: 20151111, end: 20151117
  17. DEXAMETHASONE [Concomitant]
     Active Substance: DEXAMETHASONE
     Dosage: 16 MILLIGRAM, QD, REDUCING DOSE FROM HOSPITAL ADMISSION 8/OCT/2015- 10/OCT/2015
     Route: 048
     Dates: start: 20151008, end: 20151020
  18. DEXAMETHASONE [Concomitant]
     Active Substance: DEXAMETHASONE
     Dosage: 8 MILLIGRAM, QD
     Route: 048
     Dates: start: 20151104, end: 20151110
  19. DEXAMETHASONE [Concomitant]
     Active Substance: DEXAMETHASONE
     Dosage: 2 MILLIGRAM, QD
     Route: 048
     Dates: start: 20151118, end: 20151124
  20. DEXAMETHASONE [Concomitant]
     Active Substance: DEXAMETHASONE
     Dosage: 2 MILLIGRAM, QD
     Route: 048
     Dates: start: 20151125, end: 20151202
  21. DEXAMETHASONE [Concomitant]
     Active Substance: DEXAMETHASONE
     Dosage: 1 MILLIGRAM
     Route: 048
     Dates: start: 20151125, end: 20151202
  22. DEXAMETHASONE [Concomitant]
     Active Substance: DEXAMETHASONE
     Dosage: 4 MILLIGRAM
     Route: 048
     Dates: start: 20151020, end: 20151103
  23. DEXAMETHASONE [Concomitant]
     Active Substance: DEXAMETHASONE
     Dosage: 4 MILLIGRAM
     Route: 048
     Dates: start: 20151104, end: 20151110
  24. DEXAMETHASONE [Concomitant]
     Active Substance: DEXAMETHASONE
     Dosage: 2 MILLIGRAM, REDUCING WEEKLY DOSE
     Route: 048
     Dates: start: 20151111, end: 20151117
  25. DEXAMETHASONE [Concomitant]
     Active Substance: DEXAMETHASONE
     Dosage: 8 MILLIGRAM, REDUCING DOSE FROM HOSPITAL ADMISSION 8/OCT/2015- 10/OCT/2015
     Route: 048
     Dates: start: 20151008, end: 20151020
  26. DEXAMETHASONE [Concomitant]
     Active Substance: DEXAMETHASONE
     Dosage: 1 MILLIGRAM
     Route: 048
     Dates: start: 20151118, end: 20151124
  27. DEXAMETHASONE [Concomitant]
     Active Substance: DEXAMETHASONE
     Dosage: 8 MILLIGRAM, BID, REDUCING DOSE FROM HOSPITAL ADMISSION 8/OCT/2015- 10/OCT/2015
     Route: 048
     Dates: start: 20151008, end: 20151020
  28. GABAPENTIN [Concomitant]
     Active Substance: GABAPENTIN
     Dosage: 300 MILLIGRAM, Q3D
     Route: 048
     Dates: start: 20151231
  29. GABAPENTIN [Concomitant]
     Active Substance: GABAPENTIN
     Dosage: 1.2 MILLIGRAM
     Dates: start: 20151231
  30. GABAPENTIN [Concomitant]
     Active Substance: GABAPENTIN
     Dosage: 4 MILLIGRAM REDUCING WEEKLY DOSE
     Route: 067
     Dates: start: 20151111, end: 20151117
  31. GABAPENTIN [Concomitant]
     Active Substance: GABAPENTIN
     Dosage: 1.2 MILLIGRAM
     Route: 067
  32. GABAPENTIN [Concomitant]
     Active Substance: GABAPENTIN
     Dosage: 1.2 MILLIGRAM
     Route: 048
  33. GABAPENTIN [Concomitant]
     Active Substance: GABAPENTIN
     Dosage: 1.2 GRAM
     Route: 048
  34. GABAPENTIN [Concomitant]
     Active Substance: GABAPENTIN
     Dosage: 1.2 GRAM
     Route: 067
  35. GABAPENTIN [Concomitant]
     Active Substance: GABAPENTIN
     Dosage: 1.2 GRAM, TID
     Route: 048
  36. MEROPENEM [Concomitant]
     Active Substance: MEROPENEM
     Indication: Pyrexia
     Dosage: 1 GRAM, QD
     Route: 042
     Dates: start: 20180813, end: 20180814
  37. MEROPENEM [Concomitant]
     Active Substance: MEROPENEM
     Indication: Sepsis
     Dosage: 1 GRAM, QD
     Route: 042
     Dates: start: 20181222, end: 20181227
  38. MEROPENEM [Concomitant]
     Active Substance: MEROPENEM
     Indication: Pneumonia
     Dosage: 3 GRAM, QD
     Route: 042
     Dates: start: 20181222, end: 20181227
  39. MEROPENEM [Concomitant]
     Active Substance: MEROPENEM
     Dosage: 3 GRAM, QD
     Route: 042
     Dates: start: 20180813, end: 20180814
  40. MEROPENEM [Concomitant]
     Active Substance: MEROPENEM
     Dosage: 1 GRAM, TID
     Route: 042
     Dates: start: 20190610, end: 20190617
  41. MEROPENEM [Concomitant]
     Active Substance: MEROPENEM
     Dosage: 1 GRAM
     Route: 042
     Dates: start: 20190205, end: 20190205
  42. MEROPENEM [Concomitant]
     Active Substance: MEROPENEM
     Dosage: 1 GRAM ONE OFF DOSE
     Route: 042
     Dates: start: 20200728, end: 20200728
  43. MEROPENEM [Concomitant]
     Active Substance: MEROPENEM
     Dosage: 1 GRAM
     Route: 042
     Dates: start: 20200622, end: 20200622
  44. MEROPENEM [Concomitant]
     Active Substance: MEROPENEM
     Dosage: 1 GRAM
     Route: 042
     Dates: start: 20200622, end: 20200623
  45. MEROPENEM [Concomitant]
     Active Substance: MEROPENEM
     Dosage: 1 GRAM
     Route: 042
     Dates: start: 20201121, end: 20201121
  46. MEROPENEM [Concomitant]
     Active Substance: MEROPENEM
     Dosage: 3 GRAM, QD
     Route: 042
     Dates: start: 20180813, end: 20180814
  47. MEROPENEM [Concomitant]
     Active Substance: MEROPENEM
     Dosage: 1 GRAM
     Route: 042
     Dates: start: 20190610, end: 20190617
  48. MORPHINE [Concomitant]
     Active Substance: MORPHINE
     Indication: Back pain
     Dosage: 60 MILLIGRAM, QD (ONCE AT NIGHT)
     Route: 048
     Dates: start: 201504, end: 20160516
  49. MORPHINE [Concomitant]
     Active Substance: MORPHINE
     Indication: Metastases to bone
     Dosage: 40 MILLIGRAM, QD(EVERY NIGHT)
     Route: 048
     Dates: start: 20150516, end: 201611
  50. MORPHINE [Concomitant]
     Active Substance: MORPHINE
     Dosage: 30 MILLIGRAM, QD
     Route: 048
     Dates: start: 201504
  51. MORPHINE [Concomitant]
     Active Substance: MORPHINE
     Dosage: 10 MILLIGRAM, QD LIQUID
     Route: 048
     Dates: start: 20171224
  52. MORPHINE [Concomitant]
     Active Substance: MORPHINE
     Dosage: 10 MILLIGRAM, QD LIQUID
     Route: 048
     Dates: start: 20171224
  53. DENOSUMAB [Concomitant]
     Active Substance: DENOSUMAB
     Indication: Metastases to bone
     Dosage: 120 MILLIGRAM, 6XW TREATMENT OF BONE METASTASES
     Route: 058
     Dates: start: 20180118
  54. DENOSUMAB [Concomitant]
     Active Substance: DENOSUMAB
     Dosage: 120 MILLIGRAM, 4XW TREATMENT OF BONE METASTASES
     Route: 058
     Dates: start: 20170604, end: 20170613
  55. DENOSUMAB [Concomitant]
     Active Substance: DENOSUMAB
     Dosage: 120 MILLIGRAM, 4XW TREATMENT OF BONE METASTASES
     Route: 058
     Dates: start: 20170613
  56. DENOSUMAB [Concomitant]
     Active Substance: DENOSUMAB
     Dosage: 120 MILLIGRAM
     Route: 058
     Dates: start: 20170604, end: 20170613
  57. DENOSUMAB [Concomitant]
     Active Substance: DENOSUMAB
     Dosage: 120 MILLIGRAM, TREATMENT OF BONE METASTASES
     Route: 058
     Dates: start: 20180118
  58. ZOMETA [Concomitant]
     Active Substance: ZOLEDRONIC ACID
     Dosage: 4 MILLIGRAM (04 MONTH) TREATMENT OF BONE DISEASE
     Route: 042
     Dates: start: 20150827, end: 20160314
  59. ACETAMINOPHEN [Concomitant]
     Active Substance: ACETAMINOPHEN
     Dosage: 500 MILLIGRAM, PRN
     Route: 048
     Dates: start: 201504
  60. PENICILLIN G [Concomitant]
     Active Substance: PENICILLIN G
     Indication: Pyrexia
     Dosage: 1.2 GRAM, QID
     Route: 042
     Dates: start: 20180912, end: 20180915
  61. PENICILLIN G [Concomitant]
     Active Substance: PENICILLIN G
     Indication: Cellulitis
     Dosage: UNK
  62. PENICILLIN G [Concomitant]
     Active Substance: PENICILLIN G
     Dosage: 4.8 GRAM, QD
     Route: 042
     Dates: start: 20180912, end: 20180915
  63. PENICILLIN G [Concomitant]
     Active Substance: PENICILLIN G
     Dosage: 1.2 GRAM
     Route: 042
     Dates: start: 20180912, end: 20180915
  64. DIAZEPAM [Concomitant]
     Active Substance: DIAZEPAM
     Indication: Back pain
     Dosage: UNK
  65. DIAZEPAM [Concomitant]
     Active Substance: DIAZEPAM
     Indication: Musculoskeletal stiffness
     Dosage: 2 MILLIGRAM, QD
     Route: 048
     Dates: start: 20180105
  66. DIAZEPAM [Concomitant]
     Active Substance: DIAZEPAM
     Dosage: 2 MILLIGRAM, TID
     Route: 048
     Dates: start: 20180105
  67. AMOXICILLIN [Concomitant]
     Active Substance: AMOXICILLIN
     Indication: Lower respiratory tract infection
     Dosage: 1000 MILLIGRAM, TID
     Route: 048
     Dates: start: 20180701, end: 20180711
  68. AMOXICILLIN [Concomitant]
     Active Substance: AMOXICILLIN
     Indication: Osteomyelitis
     Dosage: UNK
     Route: 048
     Dates: start: 20170701, end: 20170706
  69. AMOXICILLIN [Concomitant]
     Active Substance: AMOXICILLIN
     Indication: Pyrexia
     Dosage: 3000 MILLIGRAM, QD
     Route: 048
     Dates: start: 20180701, end: 20180711
  70. AMOXICILLIN [Concomitant]
     Active Substance: AMOXICILLIN
     Indication: Pneumonia
     Dosage: 500 MILLIGRAM, TID
     Route: 048
     Dates: start: 20180701, end: 20180711
  71. AMOXICILLIN [Concomitant]
     Active Substance: AMOXICILLIN
     Indication: Osteomyelitis
     Dosage: UNK
  72. AMOXICILLIN [Concomitant]
     Active Substance: AMOXICILLIN
     Indication: Lower respiratory tract infection
     Dosage: 500 MILLIGRAM, TID
     Route: 048
     Dates: start: 20190414
  73. AMOXICILLIN [Concomitant]
     Active Substance: AMOXICILLIN
     Dosage: 1 GRAM, TID
     Route: 048
     Dates: start: 20191219, end: 20191221
  74. AMOXICILLIN [Concomitant]
     Active Substance: AMOXICILLIN
     Dosage: 1 GRAM, TID
     Route: 048
     Dates: start: 20200626, end: 20200628
  75. AMOXICILLIN [Concomitant]
     Active Substance: AMOXICILLIN
     Dosage: 1 GRAM, TID
     Route: 048
     Dates: start: 20191115, end: 20191118
  76. AMOXICILLIN [Concomitant]
     Active Substance: AMOXICILLIN
     Dosage: 500 MILLIGRAM, TID
     Route: 048
     Dates: start: 20201027
  77. AMOXICILLIN [Concomitant]
     Active Substance: AMOXICILLIN
     Dosage: 500 MILLIGRAM, TID
     Route: 048
     Dates: start: 20201122, end: 20201127
  78. AMOXICILLIN [Concomitant]
     Active Substance: AMOXICILLIN
     Dosage: 500 MILLIGRAM
     Route: 048
     Dates: start: 20190414
  79. AMOXICILLIN [Concomitant]
     Active Substance: AMOXICILLIN
     Dosage: 1 GRAM
     Route: 048
     Dates: start: 20191219, end: 20191221
  80. AMOXICILLIN [Concomitant]
     Active Substance: AMOXICILLIN
     Dosage: 1 GRAM
     Route: 048
     Dates: start: 20200626, end: 20200628
  81. AMOXICILLIN [Concomitant]
     Active Substance: AMOXICILLIN
     Dosage: 1 GRAM
     Route: 048
     Dates: start: 20191115, end: 20191118
  82. AMOXICILLIN [Concomitant]
     Active Substance: AMOXICILLIN
     Dosage: 500 MILLIGRAM
     Route: 048
     Dates: start: 20180701, end: 20180711
  83. AMOXICILLIN [Concomitant]
     Active Substance: AMOXICILLIN
     Dosage: 1000 MILLIGRAM
     Route: 048
     Dates: start: 20180701, end: 20180711
  84. AMOXICILLIN [Concomitant]
     Active Substance: AMOXICILLIN
     Indication: Lower respiratory tract infection
     Dosage: UNK UNK, TID
     Route: 042
     Dates: start: 20191111, end: 20191115
  85. AMOXICILLIN [Concomitant]
     Active Substance: AMOXICILLIN
     Indication: Osteomyelitis
     Dosage: 1 GRAM, TID
     Route: 042
     Dates: start: 20191218, end: 20191219
  86. AMOXICILLIN [Concomitant]
     Active Substance: AMOXICILLIN
     Indication: Pyrexia
     Dosage: 1 GRAM, TID
     Route: 042
     Dates: start: 20200622, end: 20200626
  87. AMOXICILLIN [Concomitant]
     Active Substance: AMOXICILLIN
     Indication: Pneumonia
     Dosage: 1 GRAM, TID
     Route: 042
     Dates: start: 20191111, end: 20191115
  88. AMOXICILLIN [Concomitant]
     Active Substance: AMOXICILLIN
     Dosage: 1 GRAM, TID
     Route: 042
     Dates: start: 20191219, end: 20191221
  89. AMOXICILLIN [Concomitant]
     Active Substance: AMOXICILLIN
     Dosage: 1 GRAM, TID
     Route: 042
     Dates: start: 20200626, end: 20200628
  90. AMOXICILLIN [Concomitant]
     Active Substance: AMOXICILLIN
     Dosage: 1 GRAM, TID
     Route: 042
     Dates: start: 20201121, end: 20201221
  91. AMOXICILLIN [Concomitant]
     Active Substance: AMOXICILLIN
     Dosage: 1 GRAM, TID
     Route: 042
     Dates: start: 20201026
  92. AMOXICILLIN [Concomitant]
     Active Substance: AMOXICILLIN
     Dosage: 1 GRAM
     Route: 042
     Dates: start: 20191111, end: 20191115
  93. DOXYCYCLINE [Concomitant]
     Active Substance: DOXYCYCLINE
     Indication: Pyrexia
     Dosage: 100 MILLIGRAM, BID
     Route: 048
     Dates: start: 20180814, end: 20180814
  94. DOXYCYCLINE [Concomitant]
     Active Substance: DOXYCYCLINE
     Indication: Lower respiratory tract infection
     Dosage: 100 MILLIGRAM, QD
     Route: 048
     Dates: start: 20170112, end: 20170118
  95. DOXYCYCLINE [Concomitant]
     Active Substance: DOXYCYCLINE
     Indication: Oral herpes
     Dosage: 200 MILLIGRAM, QD
     Route: 048
     Dates: start: 20180814, end: 20180814
  96. DOXYCYCLINE [Concomitant]
     Active Substance: DOXYCYCLINE
     Indication: Herpes zoster
     Dosage: 100 MILLIGRAM, QD
     Route: 048
     Dates: start: 20180815
  97. DOXYCYCLINE [Concomitant]
     Active Substance: DOXYCYCLINE
     Indication: Cellulitis
     Dosage: 100 MILLIGRAM 0.5 DAYS
     Route: 048
     Dates: start: 20190929, end: 20191005
  98. DOXYCYCLINE [Concomitant]
     Active Substance: DOXYCYCLINE
     Indication: Pneumonia
     Dosage: 200 MILLIGRAM, QD
     Route: 048
     Dates: start: 20191223, end: 20191230
  99. DOXYCYCLINE [Concomitant]
     Active Substance: DOXYCYCLINE
     Dosage: 100 MILLIGRAM, QD
     Route: 048
     Dates: start: 20200728, end: 20200728
  100. DOXYCYCLINE [Concomitant]
     Active Substance: DOXYCYCLINE
     Dosage: 200 MILLIGRAM, QD
     Route: 048
     Dates: start: 20191223, end: 20191230
  101. DOXYCYCLINE [Concomitant]
     Active Substance: DOXYCYCLINE
     Dosage: 200 MILLIGRAM, QD
     Route: 048
     Dates: start: 20190929, end: 20191005
  102. DOXYCYCLINE [Concomitant]
     Active Substance: DOXYCYCLINE
     Dosage: 100 MILLIGRAM
     Route: 048
     Dates: start: 20180814, end: 20180814
  103. DOXYCYCLINE [Concomitant]
     Active Substance: DOXYCYCLINE
     Dosage: UNK
     Route: 048
     Dates: start: 20170112, end: 20170118
  104. DOXYCYCLINE [Concomitant]
     Active Substance: DOXYCYCLINE
     Dosage: 100 MILLIGRAM
     Route: 048
     Dates: start: 20190929, end: 20191005
  105. DOXYCYCLINE [Concomitant]
     Active Substance: DOXYCYCLINE
     Dosage: 100 MILLIGRAM, QD
     Route: 048
     Dates: start: 20180815
  106. METRONIDAZOLE [Concomitant]
     Active Substance: METRONIDAZOLE
     Indication: Osteomyelitis
     Dosage: 400 MILLIGRAM, QD
     Route: 048
     Dates: start: 20180915, end: 20180921
  107. METRONIDAZOLE [Concomitant]
     Active Substance: METRONIDAZOLE
     Indication: Cellulitis
     Dosage: UNK
     Route: 048
     Dates: start: 20170701, end: 20170708
  108. METRONIDAZOLE [Concomitant]
     Active Substance: METRONIDAZOLE
     Dosage: 1600 MILLIGRAM, QD
     Route: 048
     Dates: start: 20180915, end: 20180921
  109. CITALOPRAM [Concomitant]
     Active Substance: CITALOPRAM HYDROBROMIDE
     Dosage: 40 MILLIGRAM, QD
     Route: 048
     Dates: start: 2005
  110. CITALOPRAM [Concomitant]
     Active Substance: CITALOPRAM HYDROBROMIDE
     Dosage: 40 MILLIGRAM, QD
     Route: 048
     Dates: start: 20210522
  111. BUTYLSCOPOLAMINE BROMIDE [Concomitant]
     Active Substance: BUTYLSCOPOLAMINE BROMIDE
     Indication: Nausea
     Dosage: 10 MILLIGRAM, QD
     Route: 048
     Dates: start: 20181222
  112. BUTYLSCOPOLAMINE BROMIDE [Concomitant]
     Active Substance: BUTYLSCOPOLAMINE BROMIDE
     Dosage: 30 MILLIGRAM, QD
     Route: 048
     Dates: start: 20181222
  113. CLARITHROMYCIN [Concomitant]
     Active Substance: CLARITHROMYCIN
     Indication: Lower respiratory tract infection
     Dosage: 500 MILLIGRAM, QD
     Route: 048
     Dates: start: 20180701, end: 20180711
  114. CLARITHROMYCIN [Concomitant]
     Active Substance: CLARITHROMYCIN
     Indication: Pyrexia
     Dosage: 1000 MILLIGRAM, QD
     Route: 048
     Dates: start: 20180701, end: 20180711
  115. CLARITHROMYCIN [Concomitant]
     Active Substance: CLARITHROMYCIN
     Indication: Pneumonia
     Dosage: 500 MILLIGRAM, BID
     Route: 048
     Dates: start: 20191219, end: 20191221
  116. CLARITHROMYCIN [Concomitant]
     Active Substance: CLARITHROMYCIN
     Indication: Sepsis
     Dosage: 500 MILLIGRAM, BID
     Route: 048
     Dates: start: 20191111, end: 20191118
  117. CLARITHROMYCIN [Concomitant]
     Active Substance: CLARITHROMYCIN
     Dosage: 500 MILLIGRAM, BID
     Route: 048
     Dates: start: 20190415
  118. CLARITHROMYCIN [Concomitant]
     Active Substance: CLARITHROMYCIN
     Dosage: 500 MILLIGRAM, BID
     Route: 048
     Dates: start: 20200622, end: 20200628
  119. CLARITHROMYCIN [Concomitant]
     Active Substance: CLARITHROMYCIN
     Dosage: 500 MILLIGRAM, BID
     Route: 048
     Dates: start: 20200728, end: 20200803
  120. CLARITHROMYCIN [Concomitant]
     Active Substance: CLARITHROMYCIN
     Dosage: 500 MILLIGRAM, BID
     Route: 048
     Dates: start: 20201027
  121. CLARITHROMYCIN [Concomitant]
     Active Substance: CLARITHROMYCIN
     Dosage: 500 MILLIGRAM, BID (2X/DAY)
     Route: 048
     Dates: start: 20200622, end: 20200623
  122. CLARITHROMYCIN [Concomitant]
     Active Substance: CLARITHROMYCIN
     Dosage: 600 MILLIGRAM, BID (2X/DAY)
     Dates: start: 20190611, end: 20190621
  123. CLARITHROMYCIN [Concomitant]
     Active Substance: CLARITHROMYCIN
     Dosage: 500 MILLIGRAM, BID
     Route: 048
     Dates: start: 20180701, end: 20180711
  124. CLARITHROMYCIN [Concomitant]
     Active Substance: CLARITHROMYCIN
     Dosage: 500 MILLIGRAM, QD
     Route: 048
     Dates: start: 20191219, end: 20191221
  125. CLARITHROMYCIN [Concomitant]
     Active Substance: CLARITHROMYCIN
     Dosage: 500 MILLIGRAM
     Route: 048
     Dates: start: 20180701, end: 20180711
  126. CLARITHROMYCIN [Concomitant]
     Active Substance: CLARITHROMYCIN
     Dosage: 500 MILLIGRAM
     Route: 048
     Dates: start: 20200622, end: 20200628
  127. CLARITHROMYCIN [Concomitant]
     Active Substance: CLARITHROMYCIN
     Dosage: 500 MILLIGRAM
     Route: 048
     Dates: start: 20191111, end: 20191118
  128. CLARITHROMYCIN [Concomitant]
     Active Substance: CLARITHROMYCIN
     Dosage: 500 MILLIGRAM
     Route: 048
     Dates: start: 20191219, end: 20191221
  129. CLARITHROMYCIN [Concomitant]
     Active Substance: CLARITHROMYCIN
     Dosage: 500 MILLIGRAM
     Route: 048
     Dates: start: 20190415
  130. CLARITHROMYCIN [Concomitant]
     Active Substance: CLARITHROMYCIN
     Dosage: 500 MILLIGRAM
     Route: 048
     Dates: start: 20200728, end: 20200803
  131. CLARITHROMYCIN [Concomitant]
     Active Substance: CLARITHROMYCIN
     Indication: Lower respiratory tract infection
     Dosage: 500 MILLIGRAM, BID
     Route: 042
     Dates: start: 20190611, end: 20190611
  132. CLARITHROMYCIN [Concomitant]
     Active Substance: CLARITHROMYCIN
     Indication: Pyrexia
  133. CLARITHROMYCIN [Concomitant]
     Active Substance: CLARITHROMYCIN
     Indication: Pneumonia
  134. CLARITHROMYCIN [Concomitant]
     Active Substance: CLARITHROMYCIN
     Indication: Sepsis
  135. RANITIDINE HYDROCHLORIDE [Concomitant]
     Active Substance: RANITIDINE HYDROCHLORIDE
     Indication: Dyspepsia
     Dosage: 15 MILLILITER
     Route: 048
  136. LINEZOLID [Concomitant]
     Active Substance: LINEZOLID
     Indication: Pyrexia
     Dosage: 600 MILLIGRAM, QD
     Route: 048
     Dates: start: 20181223, end: 20181227
  137. LINEZOLID [Concomitant]
     Active Substance: LINEZOLID
     Indication: Cellulitis
     Dosage: 1200 MILLIGRAM, QD
     Route: 048
     Dates: start: 20181223, end: 20181227
  138. LINEZOLID [Concomitant]
     Active Substance: LINEZOLID
     Indication: Pyrexia
     Dosage: 600 MILLIGRAM, BID STAPHYLOCOCCUS AURES SHOWN ON SKIN/ SUPERFISCIAL WOUND SWAB A
     Route: 042
     Dates: start: 20190611, end: 20190621
  139. LINEZOLID [Concomitant]
     Active Substance: LINEZOLID
     Indication: Cellulitis
     Dosage: 600 MILLIGRAM, BID
     Route: 042
     Dates: start: 20200206, end: 20200212
  140. LINEZOLID [Concomitant]
     Active Substance: LINEZOLID
     Dosage: 600 MILLIGRAM, BID
     Route: 042
     Dates: start: 20200206, end: 20200206
  141. PROMETHAZINE HYDROCHLORIDE [Concomitant]
     Active Substance: PROMETHAZINE HYDROCHLORIDE
     Dosage: 50 MILLIGRAM, QD
     Route: 048
  142. PROMETHAZINE HYDROCHLORIDE [Concomitant]
     Active Substance: PROMETHAZINE HYDROCHLORIDE
     Dosage: 25 MILLIGRAM, QD
     Route: 048
  143. PROMETHAZINE HYDROCHLORIDE [Concomitant]
     Active Substance: PROMETHAZINE HYDROCHLORIDE
     Dosage: 50 MILLIGRAM, BID
     Route: 048
  144. CYCLIZINE [Concomitant]
     Active Substance: CYCLIZINE
     Dosage: 50 MILLIGRAM, QD
     Route: 048
     Dates: start: 201507
  145. CYCLIZINE [Concomitant]
     Active Substance: CYCLIZINE
     Dosage: 150 MILLIGRAM, QD
     Route: 048
     Dates: start: 201507
  146. CYCLIZINE [Concomitant]
     Active Substance: CYCLIZINE
     Dosage: 50 MILLIGRAM, TID
     Route: 048
     Dates: start: 201507
  147. VITAMIN D3 [Concomitant]
     Active Substance: CHOLECALCIFEROL
     Indication: Bone disorder
     Dosage: 400 INTERNATIONAL UNIT, QD, BONE DISEASE
     Route: 048
     Dates: start: 20150827
  148. TEICOPLANIN [Concomitant]
     Active Substance: TEICOPLANIN
     Indication: Pyrexia
     Dosage: 600 MILLIGRAM, QD
     Route: 042
     Dates: start: 20181019, end: 20181025
  149. TEICOPLANIN [Concomitant]
     Active Substance: TEICOPLANIN
     Indication: Cellulitis
     Dosage: 1200 MILLIGRAM, QD
     Route: 042
     Dates: start: 20181019, end: 20181025
  150. TEICOPLANIN [Concomitant]
     Active Substance: TEICOPLANIN
     Dosage: 800 MILLIGRAM, BID
     Route: 042
     Dates: start: 20200728, end: 20200803
  151. TEICOPLANIN [Concomitant]
     Active Substance: TEICOPLANIN
     Dosage: 600 MILLIGRAM
     Route: 042
     Dates: start: 20181019, end: 20181025
  152. TEICOPLANIN [Concomitant]
     Active Substance: TEICOPLANIN
     Dosage: 800 MILLIGRAM
     Route: 042
     Dates: start: 20200728, end: 20200803
  153. CODEINE [Concomitant]
     Active Substance: CODEINE
     Dosage: 30 MILLIGRAM, PRN (AS NEEDED)
     Route: 048
     Dates: start: 201504
  154. LISINOPRIL [Concomitant]
     Active Substance: LISINOPRIL
     Indication: Ejection fraction decreased
     Dosage: 2.5 MILLIGRAM, QD
     Route: 048
     Dates: start: 20161110
  155. LISINOPRIL [Concomitant]
     Active Substance: LISINOPRIL
     Dosage: 7.5 MILLIGRAM, QD
     Route: 048
     Dates: start: 20161110
  156. MORPHINE SULFATE [Concomitant]
     Active Substance: MORPHINE SULFATE
     Indication: Metastases to bone
     Dosage: 30 MILLIGRAM, BID
     Route: 048
     Dates: start: 201611
  157. MORPHINE SULFATE [Concomitant]
     Active Substance: MORPHINE SULFATE
     Dosage: 60 MILLIGRAM, QD
     Route: 048
     Dates: start: 201611
  158. MORPHINE SULFATE [Concomitant]
     Active Substance: MORPHINE SULFATE
     Dosage: UNK,BID, PAIN CONTROL FROM METASTATIC DISEASE
     Route: 048
     Dates: start: 201611
  159. LANSOPRAZOLE [Concomitant]
     Active Substance: LANSOPRAZOLE
     Indication: Gastrooesophageal reflux disease
     Dosage: 15 MILLIGRAM, QD TABLET
     Route: 048
     Dates: start: 2001
  160. LANSOPRAZOLE [Concomitant]
     Active Substance: LANSOPRAZOLE
     Dosage: 30 MILLIGRAM, QD, REFLUX
     Route: 048
  161. LANSOPRAZOLE [Concomitant]
     Active Substance: LANSOPRAZOLE
     Dosage: 30 MILLIGRAM, QD REFLUX
     Route: 048
  162. AMOXICILLIN\CLAVULANATE POTASSIUM [Concomitant]
     Active Substance: AMOXICILLIN\CLAVULANATE POTASSIUM
     Indication: Cellulitis
     Dosage: UNK
     Route: 048
     Dates: start: 20190322
  163. AMOXICILLIN\CLAVULANATE POTASSIUM [Concomitant]
     Active Substance: AMOXICILLIN\CLAVULANATE POTASSIUM
     Indication: Pyrexia
     Dosage: 625 MILLIGRAM, TID
     Route: 048
     Dates: start: 20190205, end: 20190206
  164. AMOXICILLIN\CLAVULANATE POTASSIUM [Concomitant]
     Active Substance: AMOXICILLIN\CLAVULANATE POTASSIUM
     Dosage: 625 MILLIGRAM
     Route: 048
     Dates: start: 20190322
  165. PIPERACILLIN SODIUM\TAZOBACTAM SODIUM [Concomitant]
     Active Substance: PIPERACILLIN SODIUM\TAZOBACTAM SODIUM
     Indication: Cellulitis
     Dosage: 4.5 MILLIGRAM, TID
     Route: 042
     Dates: start: 20191221, end: 20191227
  166. PIPERACILLIN SODIUM\TAZOBACTAM SODIUM [Concomitant]
     Active Substance: PIPERACILLIN SODIUM\TAZOBACTAM SODIUM
     Indication: Pneumonia
     Dosage: 4.5 GRAM, TID
     Route: 042
     Dates: start: 20200202, end: 20200206
  167. PIPERACILLIN SODIUM\TAZOBACTAM SODIUM [Concomitant]
     Active Substance: PIPERACILLIN SODIUM\TAZOBACTAM SODIUM
     Dosage: 4.5 MILLIGRAM
     Route: 042
     Dates: start: 20191221, end: 20191227
  168. PIPERACILLIN SODIUM\TAZOBACTAM SODIUM [Concomitant]
     Active Substance: PIPERACILLIN SODIUM\TAZOBACTAM SODIUM
     Dosage: 4.5 GRAM
     Route: 042
     Dates: start: 20200202, end: 20200206
  169. ENOXAPARIN SODIUM [Concomitant]
     Active Substance: ENOXAPARIN SODIUM
     Indication: Thrombolysis
     Dosage: 40 MILLIGRAM, QD DVT PROHYLAXIS
     Route: 058
     Dates: start: 20190610, end: 20190623
  170. ENOXAPARIN SODIUM [Concomitant]
     Active Substance: ENOXAPARIN SODIUM
     Dosage: 40 MILLIGRAM, BID (DVT PROPHYLAXIS)
     Route: 058
     Dates: start: 20200728, end: 20200805
  171. ENOXAPARIN SODIUM [Concomitant]
     Active Substance: ENOXAPARIN SODIUM
     Dosage: 40 MILLIGRAM, QD
     Route: 058
     Dates: start: 20200622, end: 20200623
  172. ENOXAPARIN SODIUM [Concomitant]
     Active Substance: ENOXAPARIN SODIUM
     Dosage: 40 MILLIGRAM, QD
     Route: 058
     Dates: start: 20200625, end: 20200625
  173. ENOXAPARIN SODIUM [Concomitant]
     Active Substance: ENOXAPARIN SODIUM
     Dosage: 40 MILLIGRAM, QD
     Route: 058
     Dates: start: 20201204, end: 20201210
  174. ENOXAPARIN SODIUM [Concomitant]
     Active Substance: ENOXAPARIN SODIUM
     Dosage: 40 MILLIGRAM, BID (DVT PROPHYLAXIS)
     Route: 058
     Dates: start: 20200805
  175. ENOXAPARIN SODIUM [Concomitant]
     Active Substance: ENOXAPARIN SODIUM
     Dosage: 40 MILLIGRAM, QD
     Route: 058
     Dates: start: 20201121, end: 20201203
  176. ENOXAPARIN SODIUM [Concomitant]
     Active Substance: ENOXAPARIN SODIUM
     Dosage: 40 MILLIGRAM, QD
     Route: 058
     Dates: start: 20200805
  177. CIPROFLOXACIN [Concomitant]
     Active Substance: CIPROFLOXACIN
     Indication: Pyrexia
     Dosage: 750 MILLIGRAM, QD
     Route: 048
     Dates: start: 20190205, end: 20190206
  178. LOPERAMIDE [Concomitant]
     Active Substance: LOPERAMIDE
     Indication: Diarrhoea
     Dosage: UNK
     Route: 065
     Dates: start: 201804, end: 2019
  179. CLINDAMYCIN [Concomitant]
     Active Substance: CLINDAMYCIN
     Indication: Cellulitis
     Dosage: 1.2 GRAM, TID
     Route: 042
     Dates: start: 20190611, end: 20190621
  180. CLINDAMYCIN [Concomitant]
     Active Substance: CLINDAMYCIN
     Dosage: 1.2 GRAM, QID STAPHYLOCOCCUS AURES SHOWN ON SKIN/ SUPERFISCIAL WOUND SWAB A
     Route: 042
     Dates: start: 20190611, end: 20190621
  181. CLINDAMYCIN [Concomitant]
     Active Substance: CLINDAMYCIN
     Dosage: 1.2 GRAM, TID
     Route: 042
     Dates: start: 20200206, end: 20200212
  182. MAGNESIUM ASPARTATE [Concomitant]
     Active Substance: MAGNESIUM ASPARTATE
     Indication: Hypomagnesaemia
     Dosage: 6.5 GRAM, BID, POWDER FOR DILUTION
     Route: 048
     Dates: start: 20191111
  183. MAGNESIUM ASPARTATE [Concomitant]
     Active Substance: MAGNESIUM ASPARTATE
     Dosage: 6.5 GRAM
     Route: 048
     Dates: start: 20191111
  184. COTRIMOXAZOLE [Concomitant]
     Active Substance: SULFAMETHOXAZOLE\TRIMETHOPRIM
     Indication: Sepsis
     Dosage: 960 MILLIGRAM 0.5 DAYS
     Route: 048
     Dates: start: 20190206, end: 20190211
  185. COTRIMOXAZOLE [Concomitant]
     Active Substance: SULFAMETHOXAZOLE\TRIMETHOPRIM
     Indication: Abdominal abscess
     Dosage: 960 MILLIGRAM, BID
     Route: 048
     Dates: start: 20181015, end: 20181022
  186. COTRIMOXAZOLE [Concomitant]
     Active Substance: SULFAMETHOXAZOLE\TRIMETHOPRIM
     Indication: Pyrexia
     Dosage: 960 MILLIGRAM, BID
     Route: 048
     Dates: start: 20200728, end: 20200803
  187. COTRIMOXAZOLE [Concomitant]
     Active Substance: SULFAMETHOXAZOLE\TRIMETHOPRIM
     Indication: Pneumonia
     Dosage: 960 MILLIGRAM, BID
     Route: 048
     Dates: start: 20190611, end: 20190611
  188. COTRIMOXAZOLE [Concomitant]
     Active Substance: SULFAMETHOXAZOLE\TRIMETHOPRIM
     Dosage: UNK (80/400, 1 TABLET )
     Route: 048
     Dates: start: 20181015, end: 20181022
  189. COTRIMOXAZOLE [Concomitant]
     Active Substance: SULFAMETHOXAZOLE\TRIMETHOPRIM
     Indication: Sepsis
     Dosage: 960 MILLIGRAM 0.5 DAYS
     Route: 042
     Dates: start: 20190611, end: 20190611
  190. COTRIMOXAZOLE [Concomitant]
     Active Substance: SULFAMETHOXAZOLE\TRIMETHOPRIM
     Indication: Abdominal abscess
     Dosage: 960 MILLIGRAM, QD
     Route: 042
     Dates: start: 20191111, end: 20191111
  191. COTRIMOXAZOLE [Concomitant]
     Active Substance: SULFAMETHOXAZOLE\TRIMETHOPRIM
     Indication: Pyrexia
  192. TINZAPARIN [Concomitant]
     Active Substance: TINZAPARIN
     Indication: Deep vein thrombosis
     Dosage: 20000 U
     Route: 058
     Dates: start: 20190928
  193. TINZAPARIN [Concomitant]
     Active Substance: TINZAPARIN
     Dosage: 22000 INTERNATIONAL UNIT, QD,POSSSIBLE DVTTREATMENT
     Route: 058
     Dates: start: 20200624, end: 20200624
  194. FLUCLOXACILLIN [Concomitant]
     Active Substance: FLUCLOXACILLIN
     Indication: Pyrexia
     Dosage: 500 MILLIGRAM 0.25 DAY
     Route: 048
     Dates: start: 20180915, end: 20180921
  195. FLUCLOXACILLIN [Concomitant]
     Active Substance: FLUCLOXACILLIN
     Indication: Cellulitis
     Dosage: PARONCHIA OF FINGER + TOE
     Route: 048
     Dates: start: 20180910, end: 20180912
  196. FLUCLOXACILLIN [Concomitant]
     Active Substance: FLUCLOXACILLIN
     Dosage: 500 MILLIGRAM, 0.25 DAY
     Route: 048
     Dates: start: 20180912, end: 20180915
  197. FLUCLOXACILLIN [Concomitant]
     Active Substance: FLUCLOXACILLIN
     Dosage: 400 MILLIGRAM, QD
     Route: 048
     Dates: start: 20180915, end: 20180921
  198. FLUCLOXACILLIN [Concomitant]
     Active Substance: FLUCLOXACILLIN
     Dosage: 1 GRAM
     Dates: start: 20180912, end: 20180915
  199. FLUCLOXACILLIN [Concomitant]
     Active Substance: FLUCLOXACILLIN
     Indication: Pyrexia
     Dosage: 1 GRAM, QID (0.25 D)
     Route: 042
     Dates: start: 20020130, end: 20200202
  200. FLUCLOXACILLIN [Concomitant]
     Active Substance: FLUCLOXACILLIN
     Indication: Cellulitis
     Dosage: 1 GRAM 0.25D
  201. FLUCLOXACILLIN [Concomitant]
     Active Substance: FLUCLOXACILLIN
     Dosage: 1 GRAM, QID
     Route: 042
     Dates: start: 20180910, end: 20180915
  202. FLUCLOXACILLIN [Concomitant]
     Active Substance: FLUCLOXACILLIN
     Dosage: 2 GRAM, QID
     Route: 042
     Dates: start: 20201209, end: 20201217
  203. FUROSEMIDE [Concomitant]
     Active Substance: FUROSEMIDE
     Indication: Lymphoedema
     Dosage: 40 MILLIGRAM, QD
     Route: 042
     Dates: start: 20200622, end: 20200623
  204. FUROSEMIDE [Concomitant]
     Active Substance: FUROSEMIDE
     Indication: Oedema peripheral
     Dosage: 40 MILLIGRAM, BID
     Route: 042
     Dates: start: 20200623, end: 20200626
  205. FUROSEMIDE [Concomitant]
     Active Substance: FUROSEMIDE
     Indication: Oedema
     Dosage: 40 MILLIGRAM, QD
     Route: 042
     Dates: start: 20200622, end: 20200623
  206. FUROSEMIDE [Concomitant]
     Active Substance: FUROSEMIDE
     Dosage: 40 MILLIGRAM
     Route: 042
     Dates: start: 20200623, end: 20200626
  207. NAPROXEN [Concomitant]
     Active Substance: NAPROXEN
     Dosage: 250 MILLIGRAM, BID
     Route: 048
  208. NAPROXEN [Concomitant]
     Active Substance: NAPROXEN
     Dosage: 250 MILLIGRAM, UNKNOWNEXACT INDICATION
     Route: 048
  209. ZANAMIVIR [Concomitant]
     Active Substance: ZANAMIVIR
     Indication: Pyrexia
     Dosage: 10 MILLIGRAM, BID INHALANT
     Route: 045
     Dates: start: 20191218, end: 20191219
  210. ZANAMIVIR [Concomitant]
     Active Substance: ZANAMIVIR
     Dosage: 10 MILLIGRAM, INHALANT
     Route: 045
     Dates: start: 20191218, end: 20191219
  211. LEVOTHYROXINE [Concomitant]
     Active Substance: LEVOTHYROXINE
     Indication: Hypothyroidism
     Dosage: 50 MICROGRAM, QD
     Route: 048
     Dates: start: 20200311
  212. RIFAMPIN [Concomitant]
     Active Substance: RIFAMPIN
     Indication: Cellulitis
     Dosage: 300 MILLIGRAM, BID
     Route: 048
     Dates: start: 20200212, end: 20200212
  213. RIFAMPIN [Concomitant]
     Active Substance: RIFAMPIN
     Dosage: 300 MILLIGRAM
     Route: 048
     Dates: start: 20200212, end: 20200212
  214. VANCOMYCIN [Concomitant]
     Active Substance: VANCOMYCIN
     Indication: Cellulitis
     Dosage: 1.5 GRAM, BID
     Route: 042
     Dates: start: 20200201, end: 20200206
  215. PREDNISOLONE [Concomitant]
     Active Substance: PREDNISOLONE
     Indication: Pneumonia
     Dosage: 30 MILLIGRAM, QD
     Route: 048
     Dates: start: 20200625, end: 20200629
  216. CALCIUM [Concomitant]
     Active Substance: CALCIUM
     Indication: Product used for unknown indication
     Dosage: 500 MILLIGRAM, QD  BONE DISEASE
     Route: 048
     Dates: start: 20150727, end: 20180117
  217. DERMOL [Concomitant]
     Active Substance: BENZALKONIUM CHLORIDE\CHLORHEXIDINE HYDROCHLORIDE\ISOPROPYL MYRISTATE\PARAFFIN
     Dosage: 0.25 D, FOR SKIN
     Route: 061
  218. DERMOL [Concomitant]
     Active Substance: BENZALKONIUM CHLORIDE\CHLORHEXIDINE HYDROCHLORIDE\ISOPROPYL MYRISTATE\PARAFFIN
     Dosage: UNK, 4X/DAY
     Route: 061
  219. DERMOL [Concomitant]
     Active Substance: BENZALKONIUM CHLORIDE\CHLORHEXIDINE HYDROCHLORIDE\ISOPROPYL MYRISTATE\PARAFFIN
     Dosage: UNK (FOR SKIN)
     Route: 061
  220. CALCIUM CARBONATE\SODIUM ALGINATE\SODIUM BICARBONATE [Concomitant]
     Active Substance: CALCIUM CARBONATE\SODIUM ALGINATE\SODIUM BICARBONATE
     Indication: Dyspepsia
     Dosage: 15 MILLILITER, PRN
     Route: 048
  221. COTRIMOXAZOLE [Concomitant]
     Active Substance: SULFAMETHOXAZOLE\TRIMETHOPRIM
     Indication: Sepsis
     Dosage: UNK
     Route: 061
  222. COTRIMOXAZOLE [Concomitant]
     Active Substance: SULFAMETHOXAZOLE\TRIMETHOPRIM
     Indication: Abdominal abscess
  223. COTRIMOXAZOLE [Concomitant]
     Active Substance: SULFAMETHOXAZOLE\TRIMETHOPRIM
     Indication: Pyrexia
  224. FUROSEMIDE [Concomitant]
     Active Substance: FUROSEMIDE
     Indication: Lymphoedema
     Dosage: 40 MILLIGRAM, QD
     Route: 048
     Dates: start: 20191117
  225. FUROSEMIDE [Concomitant]
     Active Substance: FUROSEMIDE
     Indication: Oedema peripheral
     Dosage: 20 MILLIGRAM, QD
     Route: 048
     Dates: start: 20191113, end: 20191116
  226. FUROSEMIDE [Concomitant]
     Active Substance: FUROSEMIDE
     Indication: Oedema
     Dosage: 40 MILLIGRAM, BID
     Route: 048
     Dates: start: 20200626, end: 20201220
  227. FUROSEMIDE [Concomitant]
     Active Substance: FUROSEMIDE
     Dosage: 80 MILLIGRAM, QD
     Route: 048
     Dates: start: 20151112, end: 20151118
  228. FUROSEMIDE [Concomitant]
     Active Substance: FUROSEMIDE
     Dosage: 40 MILLIGRAM
     Route: 048
     Dates: start: 20200626

REACTIONS (8)
  - Herpes zoster [Recovered/Resolved]
  - Humerus fracture [Recovered/Resolved]
  - Oral herpes [Recovered/Resolved]
  - Lymphoedema [Recovered/Resolved]
  - Anaemia [Recovered/Resolved]
  - Musculoskeletal stiffness [Not Recovered/Not Resolved]
  - Back pain [Not Recovered/Not Resolved]
  - Dyspepsia [Recovered/Resolved]

NARRATIVE: CASE EVENT DATE: 20151112
